FAERS Safety Report 6765063-7 (Version None)
Quarter: 2010Q2

REPORT INFORMATION
  Report Type: 
  Country: None (occurrence: None)
  Receive Date: 20100609
  Receipt Date: 20100609
  Transmission Date: 20101027
  Serious: Yes (Hospitalization)
  Sender: FDA-Public Use
  Company Number: None

PATIENT
  Age: 60 Year
  Sex: Male
  Weight: 108.9 kg

DRUGS (2)
  1. FLUPHENAZINE [Suspect]
     Indication: SCHIZOPHRENIA, PARANOID TYPE
     Dosage: 50 MG OTHER IM
     Route: 030
     Dates: start: 20070801, end: 20100505
  2. FLUPHENAZINE [Suspect]
     Dosage: 10 MG HS PO
     Route: 048
     Dates: start: 20090903, end: 20100505

REACTIONS (2)
  - DYSTONIA [None]
  - NEUROLEPTIC MALIGNANT SYNDROME [None]
